FAERS Safety Report 5081046-X (Version None)
Quarter: 2006Q3

REPORT INFORMATION
  Report Type: 
  Country: None (occurrence: None)
  Receive Date: 20060816
  Receipt Date: 20060811
  Transmission Date: 20061208
  Serious: Yes (Other)
  Sender: FDA-Public Use
  Company Number: 2006UW16056

PATIENT
  Age: 81 Year
  Sex: Female
  Weight: 64.1 kg

DRUGS (4)
  1. ARIMIDEX [Suspect]
     Indication: BREAST CANCER
     Route: 048
  2. THYROID PILL [Concomitant]
  3. VITAMIN B-12 [Concomitant]
  4. CALCIUM GLUCONATE [Concomitant]

REACTIONS (2)
  - EYE HAEMORRHAGE [None]
  - RETINAL DEGENERATION [None]
